FAERS Safety Report 13761916 (Version 1)
Quarter: 2017Q3

REPORT INFORMATION
  Report Type: Spontaneous
  Country: IN (occurrence: IN)
  Receive Date: 20170718
  Receipt Date: 20170718
  Transmission Date: 20171127
  Serious: No
  Sender: FDA-Public Use
  Company Number: IN-LUPIN PHARMACEUTICALS INC.-2017-01746

PATIENT
  Age: 10 Month
  Sex: Male

DRUGS (1)
  1. ODOXIL SUSP DRY [Suspect]
     Active Substance: CEFADROXIL
     Dosage: 2.5 ML, BID
     Route: 048
     Dates: start: 20170328, end: 20170404

REACTIONS (1)
  - Drug ineffective [Not Recovered/Not Resolved]

NARRATIVE: CASE EVENT DATE: 201703
